FAERS Safety Report 10373703 (Version 1)
Quarter: 2014Q1

REPORT INFORMATION
  Report Type: Spontaneous
  Country: US (occurrence: None)
  Receive Date: 20140306
  Receipt Date: 20140306
  Transmission Date: 20141002
  Serious: Yes (Other)
  Sender: FDA-Public Use
  Company Number: 163-21880-13083293

PATIENT
  Age: 70 Year
  Sex: Male
  Weight: 198 kg

DRUGS (9)
  1. REVLIMID (LENALIDOMIDE) (25 MILLIGRAM, CAPSULES) [Suspect]
     Indication: PLASMA CELL MYELOMA
     Route: 048
     Dates: start: 20120702
  2. ANDROGEL (TESTOSTERONE) (1 PERCENT, GEL) [Concomitant]
  3. DEXAMETHASONE (DEXAMETHASONE) (TABLETS) [Concomitant]
  4. FUROSEMIDE (FUROSEMIDE) (TABLETS) [Concomitant]
  5. PROVENTIL HFA (SALBUTAMOL) (INHALANT) [Concomitant]
  6. NORTRIPTYLINE HCL (NORTRIPTYLINE HYDROCHLORIDE) (CAPSULES) [Concomitant]
  7. SIMVASTATIN (SIMVASTATIN) (TABLETS) [Concomitant]
  8. NOVOLOG (INSULIN ASPART) [Concomitant]
  9. ADVAIR DISKUS (SERETIDE MITE) (UNKNOWN) [Concomitant]

REACTIONS (1)
  - Staphylococcal infection [None]
